FAERS Safety Report 6979388-3 (Version None)
Quarter: 2010Q3

REPORT INFORMATION
  Report Type: 
  Country: None (occurrence: None)
  Receive Date: 20100913
  Receipt Date: 20100903
  Transmission Date: 20110219
  Serious: Yes (Life-Threatening, Other)
  Sender: FDA-Public Use
  Company Number: US-PURDUE-USA-2010-0046492

PATIENT
  Age: 15 Year
  Sex: Female

DRUGS (4)
  1. OXYCODONE HCL [Suspect]
     Indication: DRUG ABUSE
  2. XANAX [Suspect]
     Indication: DRUG ABUSE
  3. ROXICODONE [Suspect]
     Indication: DRUG ABUSE
  4. COCAINE [Suspect]
     Indication: DRUG ABUSE

REACTIONS (5)
  - CYANOSIS [None]
  - DRUG ABUSE [None]
  - DYSPNOEA [None]
  - LOSS OF CONSCIOUSNESS [None]
  - OVERDOSE [None]
